FAERS Safety Report 14299839 (Version 1)
Quarter: 2017Q4

REPORT INFORMATION
  Report Type: Spontaneous
  Country: CA (occurrence: CA)
  Receive Date: 20171219
  Receipt Date: 20171219
  Transmission Date: 20180321
  Serious: Yes (Other)
  Sender: FDA-Public Use
  Company Number: CA-AMGEN-CANSP2017186004

PATIENT
  Age: 23 Year
  Sex: Female

DRUGS (1)
  1. XGEVA [Suspect]
     Active Substance: DENOSUMAB
     Indication: BONE GIANT CELL TUMOUR
     Dosage: 120 MG, QMO (FOR SIX MONTHS)
     Route: 065

REACTIONS (2)
  - Fibrous dysplasia of jaw [Unknown]
  - Tumour excision [Unknown]
